FAERS Safety Report 14039754 (Version 3)
Quarter: 2018Q1

REPORT INFORMATION
  Report Type: Report from Study
  Country: US (occurrence: US)
  Receive Date: 20171004
  Receipt Date: 20180130
  Transmission Date: 20180508
  Serious: Yes (Death, Hospitalization, Other)
  Sender: FDA-Public Use
  Company Number: US-GILEAD-2017-0296099

PATIENT
  Age: 80 Year
  Sex: Male

DRUGS (12)
  1. TOPROL XL [Concomitant]
     Active Substance: METOPROLOL SUCCINATE
  2. RANOLAZINE. [Suspect]
     Active Substance: RANOLAZINE
     Indication: VENTRICULAR ARRHYTHMIA
     Route: 065
  3. ALLOPURINOL. [Concomitant]
     Active Substance: ALLOPURINOL
  4. FINASTERIDE. [Concomitant]
     Active Substance: FINASTERIDE
  5. LANTUS [Concomitant]
     Active Substance: INSULIN GLARGINE
  6. TAMSULOSIN [Concomitant]
     Active Substance: TAMSULOSIN
  7. SIMVASTATIN. [Concomitant]
     Active Substance: SIMVASTATIN
  8. LASIX [Concomitant]
     Active Substance: FUROSEMIDE
  9. DIGOXIN. [Concomitant]
     Active Substance: DIGOXIN
  10. LISINOPRIL. [Concomitant]
     Active Substance: LISINOPRIL
  11. ASPIRIN                            /00002701/ [Concomitant]
     Active Substance: ASPIRIN
  12. GLYBURIDE. [Concomitant]
     Active Substance: GLYBURIDE

REACTIONS (3)
  - Cardiac failure [Fatal]
  - Cardiac failure [Unknown]
  - Arrhythmia [Fatal]
